FAERS Safety Report 10477439 (Version 2)
Quarter: 2016Q2

REPORT INFORMATION
  Report Type: Spontaneous
  Country: CN (occurrence: CN)
  Receive Date: 20140926
  Receipt Date: 20160530
  Transmission Date: 20160815
  Serious: Yes (Other)
  Sender: FDA-Public Use
  Company Number: CN-JNJFOC-20140917471

PATIENT
  Age: 77 Year
  Sex: Male

DRUGS (2)
  1. DICLOFENAC SODIUM. [Suspect]
     Active Substance: DICLOFENAC SODIUM
     Indication: PAIN
     Route: 054
     Dates: start: 20120820, end: 20120823
  2. DUROGESIC D-TRANS [Suspect]
     Active Substance: FENTANYL
     Indication: BACK PAIN
     Route: 062
     Dates: start: 20120820, end: 20120823

REACTIONS (5)
  - Somnolence [Recovering/Resolving]
  - Slow response to stimuli [Unknown]
  - Inappropriate schedule of drug administration [Unknown]
  - Urinary retention [Unknown]
  - Depressed mood [Unknown]

NARRATIVE: CASE EVENT DATE: 20120822
